FAERS Safety Report 8924858 (Version 1)
Quarter: 2012Q4

REPORT INFORMATION
  Report Type: 
  Country: GB (occurrence: GB)
  Receive Date: 20121126
  Receipt Date: 20121126
  Transmission Date: 20130627
  Serious: Yes (Life-Threatening, Hospitalization, Disabling, Other)
  Sender: FDA-Public Use
  Company Number: GB-PFIZER INC-2012293485

PATIENT
  Age: 39 Year
  Sex: Male
  Weight: 82 kg

DRUGS (4)
  1. GABAPENTIN [Suspect]
     Indication: NECK PAIN
     Dosage: 900 mg, 3x/day
     Route: 048
     Dates: start: 20120531, end: 20121016
  2. LANSOPRAZOLE [Concomitant]
     Indication: NONSTEROIDAL ANTI-INFLAMMATORY ANALGESIC SUPPORTIVE THERAPY
     Dosage: 15 mg, UNK
     Route: 048
     Dates: start: 20120207, end: 20121016
  3. AMITRIPTYLINE [Concomitant]
     Indication: PAIN
     Dosage: 10 mg, UNK
     Route: 048
     Dates: start: 20120207, end: 20121016
  4. NAPROXEN [Concomitant]
     Indication: PAIN
     Dosage: 250 mg, UNK
     Route: 048
     Dates: start: 20120207, end: 20120629

REACTIONS (3)
  - Cerebral artery occlusion [Not Recovered/Not Resolved]
  - Hemiparesis [Not Recovered/Not Resolved]
  - Cerebrovascular accident [Not Recovered/Not Resolved]
